FAERS Safety Report 7225772-2 (Version None)
Quarter: 2011Q1

REPORT INFORMATION
  Report Type: 
  Country: None (occurrence: None)
  Receive Date: 20110110
  Receipt Date: 20110110
  Transmission Date: 20110831
  Serious: Yes (Hospitalization)
  Sender: FDA-Public Use
  Company Number: None

PATIENT
  Age: 42 Year
  Sex: Male
  Weight: 90.2658 kg

DRUGS (1)
  1. FENTANYL-100 [Suspect]
     Indication: TUMOUR PAIN
     Dosage: 100 MCG THREE DAYS
     Dates: start: 20100421, end: 20100711

REACTIONS (2)
  - MALAISE [None]
  - MYOCARDIAL INFARCTION [None]
